FAERS Safety Report 4304268-1 (Version None)
Quarter: 2004Q1

REPORT INFORMATION
  Report Type: 
  Country: None (occurrence: None)
  Receive Date: 20040225
  Receipt Date: 20040213
  Transmission Date: 20041129
  Serious: Yes (Hospitalization)
  Sender: FDA-Public Use
  Company Number: WAES 0402AUS00171

PATIENT
  Age: 79 Year
  Sex: Male

DRUGS (4)
  1. ASPIRIN [Concomitant]
  2. INDAPAMIDE [Concomitant]
  3. NIACIN [Concomitant]
  4. ZOCOR [Suspect]
     Route: 048
     Dates: start: 19940101, end: 19951224

REACTIONS (6)
  - ARTHRALGIA [None]
  - BLOOD CREATINE PHOSPHOKINASE INCREASED [None]
  - MYOGLOBINURIA [None]
  - MYOPATHY [None]
  - MYOSITIS [None]
  - PAIN IN EXTREMITY [None]
